FAERS Safety Report 12994721 (Version 2)
Quarter: 2017Q3

REPORT INFORMATION
  Report Type: Spontaneous
  Country: IT (occurrence: IT)
  Receive Date: 20161202
  Receipt Date: 20170707
  Transmission Date: 20171127
  Serious: Yes (Hospitalization, Other)
  Sender: FDA-Public Use
  Company Number: IT-WEST-WARD PHARMACEUTICALS CORP.-IT-H14001-16-02675

PATIENT
  Age: 74 Year
  Sex: Male

DRUGS (2)
  1. PHENOBARBITAL. [Suspect]
     Active Substance: PHENOBARBITAL
     Indication: ALCOHOL WITHDRAWAL SYNDROME
     Route: 065
  2. VANCOMYCIN HYDROCHLORIDE. [Concomitant]
     Active Substance: VANCOMYCIN HYDROCHLORIDE
     Indication: CLOSTRIDIUM DIFFICILE COLITIS
     Route: 065

REACTIONS (6)
  - Drug reaction with eosinophilia and systemic symptoms [Unknown]
  - Oedema peripheral [Unknown]
  - Dermatitis exfoliative [Unknown]
  - Confusional state [Unknown]
  - Pyrexia [Unknown]
  - Rash maculo-papular [Unknown]
